FAERS Safety Report 20699263 (Version 1)
Quarter: 2022Q2

REPORT INFORMATION
  Report Type: Spontaneous
  Country: US (occurrence: None)
  Receive Date: 20220411
  Receipt Date: 20220411
  Transmission Date: 20220721
  Serious: No
  Sender: FDA-Public Use
  Company Number: None

PATIENT
  Age: 76 Year
  Sex: Male
  Weight: 157 kg

DRUGS (1)
  1. CEFAZOLIN SODIUM [Suspect]
     Active Substance: CEFAZOLIN SODIUM
     Indication: Bacteraemia
     Dosage: FREQUENCY : 3 TIMES A DAY;?OTHER ROUTE : IV;?
     Route: 050
     Dates: start: 20210927, end: 20211012

REACTIONS (5)
  - Biopsy kidney abnormal [None]
  - Tubulointerstitial nephritis [None]
  - Blood urea increased [None]
  - Blood creatinine increased [None]
  - Nephritis [None]

NARRATIVE: CASE EVENT DATE: 20211006
